FAERS Safety Report 12086911 (Version 1)
Quarter: 2016Q1

REPORT INFORMATION
  Report Type: Spontaneous
  Country: US (occurrence: US)
  Receive Date: 20160217
  Receipt Date: 20160217
  Transmission Date: 20160526
  Serious: No
  Sender: FDA-Public Use
  Company Number: US-ALLERGAN-1508420US

PATIENT
  Age: 88 Year
  Sex: Female
  Weight: 55.33 kg

DRUGS (2)
  1. RESTASIS [Suspect]
     Active Substance: CYCLOSPORINE
     Indication: DRY EYE
     Dosage: ONE DROP EACH EYE IN AM + PM
     Route: 047
     Dates: start: 2000
  2. OASIS TEARS [Concomitant]
     Active Substance: GLYCERIN
     Indication: DRY EYE
     Route: 047

REACTIONS (1)
  - Eye infection [Not Recovered/Not Resolved]

NARRATIVE: CASE EVENT DATE: 20150430
